FAERS Safety Report 8800833 (Version 7)
Quarter: 2013Q3

REPORT INFORMATION
  Report Type: Report from Study
  Country: US (occurrence: US)
  Receive Date: 20120921
  Receipt Date: 20130815
  Transmission Date: 20140515
  Serious: Yes (Hospitalization, Other)
  Sender: FDA-Public Use
  Company Number: US-ACTELION-A-US2012-71380

PATIENT
  Age: 72 Year
  Sex: Female

DRUGS (22)
  1. TRACLEER [Suspect]
     Indication: PULMONARY ARTERIAL HYPERTENSION
     Dosage: 125 MG, BID
     Route: 048
     Dates: start: 2010
  2. TRACLEER [Suspect]
     Dosage: 62.5 MG, BID
     Route: 048
     Dates: start: 201304
  3. TRACLEER [Suspect]
     Dosage: 125 MG, BID
     Route: 048
     Dates: start: 20130619
  4. TYVASO [Concomitant]
  5. ADCIRCA [Concomitant]
  6. COREG [Concomitant]
     Dosage: 6.25 MG, BID
  7. LASIX [Concomitant]
     Dosage: 80 MG, BID
  8. SYNTHROID [Concomitant]
     Dosage: 200 MCG, OD
  9. LISINOPRIL [Concomitant]
  10. ASA [Concomitant]
  11. OXYGEN [Concomitant]
  12. HYDROCODONE [Concomitant]
     Dosage: UNK
  13. CARAFATE [Concomitant]
     Dosage: 1 G, OD
  14. POTASSIUM CHLORIDE [Concomitant]
     Dosage: 20 MG, OD
  15. ALLOPURINOL [Concomitant]
     Dosage: 100 MG, OD
  16. ACTOSE [Concomitant]
  17. PRILOSEC [Concomitant]
  18. GABAPENTIN [Concomitant]
  19. FEXOFENADINE [Concomitant]
  20. CELEXA [Concomitant]
  21. VALIUM [Concomitant]
  22. PRENATAL VITAMINS [Concomitant]

REACTIONS (19)
  - Renal failure [Unknown]
  - Pancytopenia [Unknown]
  - Liver function test abnormal [Recovering/Resolving]
  - Cholelithiasis [Unknown]
  - Splenomegaly [Unknown]
  - Hepatomegaly [Not Recovered/Not Resolved]
  - Biopsy bone marrow abnormal [Not Recovered/Not Resolved]
  - Anaemia [Unknown]
  - Red blood cell count decreased [Unknown]
  - Hepatic steatosis [Not Recovered/Not Resolved]
  - Nausea [Recovering/Resolving]
  - Vomiting [Recovering/Resolving]
  - Diarrhoea [Recovering/Resolving]
  - Aspartate aminotransferase increased [Recovering/Resolving]
  - Alanine aminotransferase increased [Recovering/Resolving]
  - Blood alkaline phosphatase increased [Recovering/Resolving]
  - Abdominal discomfort [Recovering/Resolving]
  - Abdominal distension [Recovering/Resolving]
  - Blood bilirubin increased [Recovering/Resolving]
